FAERS Safety Report 15989412 (Version 1)
Quarter: 2019Q1

REPORT INFORMATION
  Report Type: Spontaneous
  Country: US (occurrence: US)
  Receive Date: 20190221
  Receipt Date: 20190221
  Transmission Date: 20190418
  Serious: Yes (Other)
  Sender: FDA-Public Use
  Company Number: None

PATIENT
  Age: 26 Year
  Sex: Female
  Weight: 74.25 kg

DRUGS (2)
  1. MUCINEX FAST-MAX COLD, FLU AND SORE THROAT [Suspect]
     Active Substance: ACETAMINOPHEN\DEXTROMETHORPHAN HYDROBROMIDE\GUAIFENESIN\PHENYLEPHRINE HYDROCHLORIDE
     Indication: NASOPHARYNGITIS
     Dosage: ?          QUANTITY:20 ML;?
     Route: 048
     Dates: start: 20190221, end: 20190221
  2. MUCINEX FAST-MAX COLD, FLU AND SORE THROAT [Suspect]
     Active Substance: ACETAMINOPHEN\DEXTROMETHORPHAN HYDROBROMIDE\GUAIFENESIN\PHENYLEPHRINE HYDROCHLORIDE
     Indication: INFLUENZA
     Dosage: ?          QUANTITY:20 ML;?
     Route: 048
     Dates: start: 20190221, end: 20190221

REACTIONS (3)
  - Eye irritation [None]
  - Eye swelling [None]
  - Visual impairment [None]

NARRATIVE: CASE EVENT DATE: 20190221
